FAERS Safety Report 21133276 (Version 3)
Quarter: 2023Q4

REPORT INFORMATION
  Report Type: Spontaneous
  Country: US (occurrence: US)
  Receive Date: 20220726
  Receipt Date: 20231023
  Transmission Date: 20240109
  Serious: No
  Sender: FDA-Public Use
  Company Number: US-PFIZER INC-PV202200029646

PATIENT
  Age: 55 Year
  Sex: Female

DRUGS (7)
  1. DOCETAXEL [Suspect]
     Active Substance: DOCETAXEL
     Indication: Breast cancer female
     Dosage: 116 MG, CYCLIC (EVERY THREE WEEKS FOR 06 CYCLES)
     Dates: start: 20190515, end: 20190904
  2. TAXOTERE [Suspect]
     Active Substance: DOCETAXEL
     Indication: Breast cancer female
     Dosage: 116 MG, CYCLIC (EVERY THREE WEEKS FOR 06 CYCLES)
     Dates: start: 20190515, end: 20190904
  3. DOCEFREZ [Suspect]
     Active Substance: DOCETAXEL ANHYDROUS
     Indication: Breast cancer female
     Dosage: 116 MG, CYCLIC (EVERY THREE WEEKS FOR 06 CYCLES)
     Dates: start: 20190515, end: 20190904
  4. DOCETAXEL [Suspect]
     Active Substance: DOCETAXEL
     Indication: Breast cancer female
     Dosage: 116 MG, CYCLIC (EVERY THREE WEEKS FOR 06 CYCLES)
     Dates: start: 20190515, end: 20190904
  5. CARBOPLATIN [Concomitant]
     Active Substance: CARBOPLATIN
     Indication: Chemotherapy
     Dosage: UNK
  6. HERCEPTIN [Concomitant]
     Active Substance: TRASTUZUMAB
     Indication: Chemotherapy
     Dosage: UNK
  7. PERJETA [Concomitant]
     Active Substance: PERTUZUMAB
     Indication: Chemotherapy
     Dosage: UNK

REACTIONS (2)
  - Lacrimation increased [Not Recovered/Not Resolved]
  - Dacryostenosis acquired [Not Recovered/Not Resolved]

NARRATIVE: CASE EVENT DATE: 20190701
